FAERS Safety Report 8511598-6 (Version None)
Quarter: 2012Q3

REPORT INFORMATION
  Report Type: 
  Country: None (occurrence: None)
  Receive Date: 20120716
  Receipt Date: 20120712
  Transmission Date: 20120928
  Serious: Yes (Hospitalization)
  Sender: FDA-Public Use
  Company Number: ZA-SANOFI-AVENTIS-2012SA049599

PATIENT
  Age: 45 Year
  Sex: Male

DRUGS (7)
  1. APIDRA SOLOSTAR [Suspect]
     Indication: TYPE 2 DIABETES MELLITUS
     Route: 058
     Dates: start: 20120222, end: 20120707
  2. APIDRA SOLOSTAR [Suspect]
     Route: 058
     Dates: start: 20120707
  3. LANTUS [Suspect]
     Indication: TYPE 2 DIABETES MELLITUS
     Route: 058
     Dates: start: 20120222
  4. SOLOSTAR [Suspect]
     Dates: start: 20120707
  5. GLUCOPHAGE [Concomitant]
     Route: 048
  6. SOLOSTAR [Suspect]
     Indication: DEVICE THERAPY
     Dates: start: 20120222
  7. SOLOSTAR [Suspect]
     Dates: start: 20120222, end: 20120707

REACTIONS (2)
  - PHARYNGEAL DISORDER [None]
  - BLOOD GLUCOSE FLUCTUATION [None]
